FAERS Safety Report 19547800 (Version 1)
Quarter: 2021Q3

REPORT INFORMATION
  Report Type: Spontaneous
  Country: US (occurrence: US)
  Receive Date: 20210714
  Receipt Date: 20210714
  Transmission Date: 20211014
  Serious: Yes (Death)
  Sender: FDA-Public Use
  Company Number: None

PATIENT
  Age: 61 Year
  Sex: Male

DRUGS (15)
  1. SPIRONOLACTONE. [Concomitant]
     Active Substance: SPIRONOLACTONE
  2. FLONASE [Concomitant]
     Active Substance: FLUTICASONE PROPIONATE
  3. MORPHINE [Concomitant]
     Active Substance: MORPHINE
  4. LINZESS [Concomitant]
     Active Substance: LINACLOTIDE
  5. ALPRAZOLAM. [Concomitant]
     Active Substance: ALPRAZOLAM
  6. OXYCODONE [Concomitant]
     Active Substance: OXYCODONE
  7. DULOXETINE. [Concomitant]
     Active Substance: DULOXETINE
  8. ONDANSETRON [Concomitant]
     Active Substance: ONDANSETRON
  9. VOTRIENT [Suspect]
     Active Substance: PAZOPANIB HYDROCHLORIDE
     Indication: RENAL CANCER
     Route: 048
     Dates: start: 20210413
  10. ZOLPIDEM [Concomitant]
     Active Substance: ZOLPIDEM TARTRATE
  11. OXYCONTIN [Concomitant]
     Active Substance: OXYCODONE HYDROCHLORIDE
  12. ATROPINE. [Concomitant]
     Active Substance: ATROPINE
  13. TRAZODONE [Concomitant]
     Active Substance: TRAZODONE HYDROCHLORIDE
  14. PANTOPRAZOLE [Concomitant]
     Active Substance: PANTOPRAZOLE
  15. MOVANTIK [Concomitant]
     Active Substance: NALOXEGOL OXALATE

REACTIONS (1)
  - Death [None]

NARRATIVE: CASE EVENT DATE: 20210710
